FAERS Safety Report 19937570 (Version 1)
Quarter: 2021Q4

REPORT INFORMATION
  Report Type: Report from Study
  Country: None (occurrence: BR)
  Receive Date: 20211011
  Receipt Date: 20211011
  Transmission Date: 20220303
  Serious: Yes (Disabling)
  Sender: FDA-Public Use
  Company Number: BR-ABBVIE-21K-020-4111286-00

PATIENT
  Sex: Female
  Weight: 65 kg

DRUGS (2)
  1. RINVOQ [Suspect]
     Active Substance: UPADACITINIB
     Indication: Rheumatoid arthritis
     Dosage: 1 TABLET A DAY
     Route: 048
     Dates: start: 20210728, end: 2021
  2. RINVOQ [Suspect]
     Active Substance: UPADACITINIB
     Dosage: 1 TABLET A DAY
     Route: 048
     Dates: start: 2021

REACTIONS (4)
  - Wheelchair user [Unknown]
  - Scoliosis [Unknown]
  - Fall [Unknown]
  - Therapeutic response unexpected [Unknown]
